FAERS Safety Report 25344293 (Version 1)
Quarter: 2025Q2

REPORT INFORMATION
  Report Type: Spontaneous
  Country: US (occurrence: None)
  Receive Date: 20250521
  Receipt Date: 20250521
  Transmission Date: 20250716
  Serious: Yes (Other)
  Sender: FDA-CTU
  Company Number: None

PATIENT
  Age: 46 Year
  Sex: Female
  Weight: 76.5 kg

DRUGS (1)
  1. MONISTAT 3 [Suspect]
     Active Substance: MICONAZOLE NITRATE
     Indication: Fungal infection
     Dosage: OTHER QUANTITY : .18 SUPPOSITORY(IES);?FREQUENCY : DAILY;?
     Route: 067
     Dates: start: 20250521, end: 20250521

REACTIONS (1)
  - Vulvovaginal burning sensation [None]

NARRATIVE: CASE EVENT DATE: 20250521
